FAERS Safety Report 5257369-8 (Version None)
Quarter: 2007Q1

REPORT INFORMATION
  Report Type: 
  Country: None (occurrence: None)
  Receive Date: 20070307
  Receipt Date: 20060718
  Transmission Date: 20070707
  Serious: No
  Sender: FDA-Public Use
  Company Number: US-GLAXOSMITHKLINE-A0585997A

PATIENT
  Age: 75 Year
  Sex: Female

DRUGS (8)
  1. REQUIP [Suspect]
     Indication: RESTLESS LEGS SYNDROME
     Dosage: 1MG PER DAY
     Route: 048
     Dates: start: 20051024
  2. GINGER [Concomitant]
  3. COZAAR [Concomitant]
  4. LITHIUM CARBONATE [Concomitant]
  5. MIACALCIN [Concomitant]
  6. REMERON [Concomitant]
  7. PREVACID [Concomitant]
  8. MELATONIN [Concomitant]

REACTIONS (11)
  - AMNESIA [None]
  - ANOREXIA [None]
  - ASTHENIA [None]
  - FATIGUE [None]
  - HOT FLUSH [None]
  - HYPERHIDROSIS [None]
  - MALAISE [None]
  - NAUSEA [None]
  - PYREXIA [None]
  - TREMOR [None]
  - URINARY TRACT INFECTION [None]
